FAERS Safety Report 18822132 (Version 1)
Quarter: 2021Q1

REPORT INFORMATION
  Report Type: Spontaneous
  Country: GB (occurrence: GB)
  Receive Date: 20210202
  Receipt Date: 20210202
  Transmission Date: 20210419
  Serious: Yes (Other)
  Sender: FDA-Public Use
  Company Number: GB-ACCORD-216058

PATIENT
  Age: 36 Year
  Sex: Female
  Weight: 65 kg

DRUGS (5)
  1. DESOGESTREL [Concomitant]
     Active Substance: DESOGESTREL
     Indication: ILL-DEFINED DISORDER
     Dosage: TAKE ONE DAILY
     Dates: start: 20200929
  2. ZOLMITRIPTAN. [Concomitant]
     Active Substance: ZOLMITRIPTAN
     Indication: ILL-DEFINED DISORDER
     Dosage: 2.5MG AT START OF ATTACK. DOSE MAY BE REPEATED ...
     Dates: start: 20200602
  3. IBUPROFEN. [Concomitant]
     Active Substance: IBUPROFEN
     Indication: ILL-DEFINED DISORDER
     Dosage: TAKE ONE UP TO 3 TIMES/DAY
     Dates: start: 20200602
  4. AMITRIPTYLINE [Concomitant]
     Active Substance: AMITRIPTYLINE
     Indication: ILL-DEFINED DISORDER
     Dates: start: 20200526
  5. AMITRIPTYLINE [Suspect]
     Active Substance: AMITRIPTYLINE
     Indication: ILL-DEFINED DISORDER
     Dates: start: 20210119

REACTIONS (1)
  - Raynaud^s phenomenon [Not Recovered/Not Resolved]

NARRATIVE: CASE EVENT DATE: 20210119
